FAERS Safety Report 9203615 (Version 1)
Quarter: 2013Q2

REPORT INFORMATION
  Report Type: Spontaneous
  Country: FR (occurrence: FR)
  Receive Date: 20130402
  Receipt Date: 20130402
  Transmission Date: 20140414
  Serious: Yes (Other)
  Sender: FDA-Public Use
  Company Number: PHHY2013FR031288

PATIENT
  Sex: Female

DRUGS (2)
  1. AFINITOR [Suspect]
     Indication: BREAST CANCER
     Dosage: 5 MG, DAILY
     Route: 048
     Dates: start: 201212, end: 201301
  2. AFINITOR [Suspect]
     Dosage: 10 MG, DAILY
     Route: 048
     Dates: start: 201301

REACTIONS (3)
  - Nasal septum perforation [Recovered/Resolved]
  - Epistaxis [Unknown]
  - Rhinitis [Unknown]
